FAERS Safety Report 24845861 (Version 1)
Quarter: 2025Q1

REPORT INFORMATION
  Report Type: Spontaneous
  Country: GB (occurrence: GB)
  Receive Date: 20250115
  Receipt Date: 20250115
  Transmission Date: 20250409
  Serious: Yes (Other)
  Sender: ELI LILLY AND COMPANY
  Company Number: None

PATIENT
  Age: 31 Year
  Sex: Female
  Weight: 90 kg

DRUGS (1)
  1. MOUNJARO [Suspect]
     Active Substance: TIRZEPATIDE
     Indication: Weight control
     Dosage: 7.5 MG, WEEKLY (1/W)
     Route: 065
     Dates: start: 20240909, end: 20250107

REACTIONS (4)
  - Upper gastrointestinal haemorrhage [Not Recovered/Not Resolved]
  - Vomiting [Recovering/Resolving]
  - Rectal haemorrhage [Unknown]
  - Eructation [Unknown]

NARRATIVE: CASE EVENT DATE: 20240910
